FAERS Safety Report 18991002 (Version 2)
Quarter: 2021Q1

REPORT INFORMATION
  Report Type: Spontaneous
  Country: AU (occurrence: AU)
  Receive Date: 20210310
  Receipt Date: 20210310
  Transmission Date: 20210420
  Serious: Yes (Life-Threatening, Other)
  Sender: FDA-Public Use
  Company Number: AU-PFIZER INC-2021238055

PATIENT
  Age: 67 Year
  Sex: Male

DRUGS (3)
  1. DEXAMETHASONE SODIUM PHOSPHATE. [Suspect]
     Active Substance: DEXAMETHASONE SODIUM PHOSPHATE
     Dosage: UNK UNK, CYCLIC (7 + 3 (CYTARABINE, METHOTREXATE AND DEXAMETHASONE))
     Route: 037
  2. CYTARABINE. [Suspect]
     Active Substance: CYTARABINE
     Indication: CHLOROMA
     Dosage: UNK UNK, CYCLIC (7 + 3 (CYTARABINE, METHOTREXATE AND DEXAMETHASONE)
     Route: 037
  3. METHOTREXATE. [Suspect]
     Active Substance: METHOTREXATE
     Dosage: UNK UNK, CYCLIC (7 + 3 (CYTARABINE, METHOTREXATE AND DEXAMETHASONE))
     Route: 037

REACTIONS (5)
  - Neutropenic colitis [Recovering/Resolving]
  - Delirium [Recovering/Resolving]
  - Escherichia bacteraemia [Recovering/Resolving]
  - Drug reaction with eosinophilia and systemic symptoms [Recovering/Resolving]
  - Staphylococcal bacteraemia [Recovering/Resolving]
